FAERS Safety Report 24853495 (Version 1)
Quarter: 2025Q1

REPORT INFORMATION
  Report Type: Spontaneous
  Country: US (occurrence: US)
  Receive Date: 20250117
  Receipt Date: 20250117
  Transmission Date: 20250409
  Serious: No
  Sender: APOTEX
  Company Number: US-APOTEX-2025AP000960

PATIENT

DRUGS (1)
  1. ITRACONAZOLE [Suspect]
     Active Substance: ITRACONAZOLE
     Indication: Osteomyelitis blastomyces
     Dosage: 200 MILLIGRAM, BID
     Route: 065

REACTIONS (1)
  - Oedema peripheral [Recovered/Resolved]
